FAERS Safety Report 10812248 (Version 1)
Quarter: 2015Q1

REPORT INFORMATION
  Report Type: Spontaneous
  Country: IT (occurrence: IT)
  Receive Date: 20150218
  Receipt Date: 20150218
  Transmission Date: 20150721
  Serious: Yes (Other)
  Sender: FDA-Public Use
  Company Number: IT-ACCORD-028521

PATIENT
  Age: 33 Year
  Sex: Female

DRUGS (5)
  1. OXALIPLATIN. [Suspect]
     Active Substance: OXALIPLATIN
     Indication: ADENOCARCINOMA
     Dosage: (145 MG TOT.) ON DAY 2 CYCLES WERE REPEATED?EVERY 2 WEEKS
     Dates: start: 20091216, end: 20100303
  2. IRINOTECAN [Suspect]
     Active Substance: IRINOTECAN
     Indication: ADENOCARCINOMA
     Dosage: (300 MG TOT.) ON DAY 1 CYCLES WERE REPEATED?EVERY 2 WEEKS
     Dates: start: 20091216, end: 20100303
  3. CISPLATIN. [Suspect]
     Active Substance: CISPLATIN
     Indication: ADENOCARCINOMA
     Dosage: 130 MG TOT, Q 21 FOR THREE CYCLES
     Dates: start: 20101201, end: 20110118
  4. CAPECITABINE. [Suspect]
     Active Substance: CAPECITABINE
     Indication: ADENOCARCINOMA
     Dosage: (DAYS 2-6) CYCLES WERE REPEATED EVERY 2 WEEKS
     Dates: start: 20091216, end: 20100303
  5. DOCETAXEL. [Suspect]
     Active Substance: DOCETAXEL
     Indication: ADENOCARCINOMA
     Dosage: (130 MG TOT.) DAY 1, Q 21 FOR THREE CYCLES
     Dates: start: 20101201, end: 20110118

REACTIONS (6)
  - Neutropenia [Unknown]
  - Asthenia [Unknown]
  - Off label use [Unknown]
  - Anaemia [Recovering/Resolving]
  - Disease progression [Unknown]
  - Nausea [Unknown]
